FAERS Safety Report 4989598-2 (Version None)
Quarter: 2006Q2

REPORT INFORMATION
  Report Type: 
  Country: None (occurrence: None)
  Receive Date: 20060426
  Receipt Date: 20060412
  Transmission Date: 20061013
  Serious: Yes (Death, Hospitalization)
  Sender: FDA-Public Use
  Company Number: WAES 0604USA02110

PATIENT
  Age: 11 Year
  Sex: Male

DRUGS (6)
  1. DECADRON [Suspect]
     Indication: ACUTE PROMYELOCYTIC LEUKAEMIA
     Dosage: PO
     Route: 048
  2. CYTARABINE [Suspect]
     Indication: ACUTE PROMYELOCYTIC LEUKAEMIA
     Dosage: 360 MG
  3. THIOGUANINE [Suspect]
     Indication: ACUTE PROMYELOCYTIC LEUKAEMIA
     Dosage: 180 MG
  4. ETOPOSIDE [Suspect]
     Indication: ACUTE PROMYELOCYTIC LEUKAEMIA
     Dosage: 180 MG
  5. DAUNORUBICIN [Suspect]
     Indication: ACUTE PROMYELOCYTIC LEUKAEMIA
     Dosage: 38 MG
  6. CYTARABINE [Suspect]
     Indication: ACUTE PROMYELOCYTIC LEUKAEMIA
     Dosage: 70 MG

REACTIONS (6)
  - DRUG TOXICITY [None]
  - METASTASES TO LYMPH NODES [None]
  - RENAL CELL CARCINOMA STAGE UNSPECIFIED [None]
  - RENAL FAILURE CHRONIC [None]
  - RENAL MASS [None]
  - SUDDEN DEATH [None]
